FAERS Safety Report 6977052-8 (Version None)
Quarter: 2010Q3

REPORT INFORMATION
  Report Type: 
  Country: None (occurrence: None)
  Receive Date: 20100910
  Receipt Date: 20100903
  Transmission Date: 20110219
  Serious: Yes (Hospitalization)
  Sender: FDA-Public Use
  Company Number: JP-ROCHE-726159

PATIENT
  Sex: Female
  Weight: 49 kg

DRUGS (8)
  1. BLINDED TOCILIZUMAB [Suspect]
     Indication: RHEUMATOID ARTHRITIS
     Route: 058
     Dates: start: 20100716
  2. BLINDED TOCILIZUMAB [Suspect]
     Route: 042
     Dates: start: 20100716
  3. DICLOFENAC [Concomitant]
     Route: 048
     Dates: start: 20100401
  4. NIZATIDINE [Concomitant]
     Route: 048
     Dates: start: 20100401
  5. AMLODIPINE BESYLATE [Concomitant]
     Route: 048
     Dates: start: 20100716
  6. LIPITOR [Concomitant]
     Route: 048
     Dates: start: 20100716
  7. LOSARTAN POTASSIUM [Concomitant]
     Route: 048
     Dates: start: 20100716
  8. PURSENNID [Concomitant]
     Route: 048
     Dates: start: 20100730

REACTIONS (1)
  - GASTROINTESTINAL HAEMORRHAGE [None]
